FAERS Safety Report 4375068-1 (Version None)
Quarter: 2004Q2

REPORT INFORMATION
  Report Type: 
  Country: None (occurrence: None)
  Receive Date: 20040607
  Receipt Date: 20030613
  Transmission Date: 20050107
  Serious: Yes (Other)
  Sender: FDA-Public Use
  Company Number: 340262

PATIENT
  Sex: 0

DRUGS (3)
  1. ACCUTANE [Suspect]
     Indication: ACNE CYSTIC
     Dosage: 40 MG 2 PER DAY ORAL
     Route: 048
     Dates: start: 20030115, end: 20030417
  2. ANTIBIOTIC (ANTIBIOTICS) [Concomitant]
  3. UNKNOWN TOPICALS (*GENERIC COMPONENT(S) UNKNOWN) [Concomitant]

REACTIONS (4)
  - ADVERSE EVENT [None]
  - DRUG EXPOSURE DURING PREGNANCY [None]
  - NO ADVERSE DRUG EFFECT [None]
  - PREGNANCY [None]
